FAERS Safety Report 6338399-1 (Version None)
Quarter: 2009Q3

REPORT INFORMATION
  Report Type: 
  Country: None (occurrence: None)
  Receive Date: 20090901
  Receipt Date: 20090818
  Transmission Date: 20100115
  Serious: Yes (Other)
  Sender: FDA-Public Use
  Company Number: 8050639

PATIENT
  Sex: Female

DRUGS (6)
  1. KEPPRA [Suspect]
  2. KEPPRA [Suspect]
  3. TEGRETOL [Concomitant]
  4. DILANTIN [Concomitant]
  5. PHENYTOIN [Concomitant]
  6. CARBAMAZEPINE [Concomitant]

REACTIONS (3)
  - PRODUCT SUBSTITUTION ISSUE [None]
  - RESPIRATORY FAILURE [None]
  - STATUS EPILEPTICUS [None]
